FAERS Safety Report 7033307-2 (Version None)
Quarter: 2010Q4

REPORT INFORMATION
  Report Type: 
  Country: None (occurrence: None)
  Receive Date: 20101007
  Receipt Date: 20100930
  Transmission Date: 20110411
  Serious: Yes (Hospitalization)
  Sender: FDA-Public Use
  Company Number: B0677044A

PATIENT
  Sex: Female

DRUGS (4)
  1. ZANTAC [Suspect]
     Indication: PREMEDICATION
     Route: 042
     Dates: start: 20100915, end: 20100915
  2. PACLITAXEL [Suspect]
     Indication: UTERINE NEOPLASM
     Route: 042
     Dates: start: 20100915, end: 20100915
  3. POLARAMINE [Suspect]
     Indication: PREMEDICATION
     Route: 042
     Dates: start: 20100915, end: 20100915
  4. METHYLPREDNISOLONE [Suspect]
     Indication: PREMEDICATION
     Route: 042
     Dates: start: 20100915, end: 20100915

REACTIONS (2)
  - BACK PAIN [None]
  - HYPOTENSION [None]
